FAERS Safety Report 9660966 (Version 2)
Quarter: 2013Q4

REPORT INFORMATION
  Report Type: Spontaneous
  Country: US (occurrence: US)
  Receive Date: 20131031
  Receipt Date: 20131230
  Transmission Date: 20140711
  Serious: Yes (Hospitalization)
  Sender: FDA-Public Use
  Company Number: US-BAYER-2013-132577

PATIENT
  Age: 25 Year
  Sex: Female
  Weight: 57.6 kg

DRUGS (3)
  1. YASMIN [Suspect]
     Indication: CONTRACEPTION
     Dosage: UNK
     Route: 048
     Dates: start: 200604, end: 200610
  2. YASMIN [Suspect]
     Indication: ACNE
  3. ALDARA [Concomitant]

REACTIONS (1)
  - Deep vein thrombosis [None]
